FAERS Safety Report 7978189-7 (Version None)
Quarter: 2011Q4

REPORT INFORMATION
  Report Type: 
  Country: None (occurrence: None)
  Receive Date: 20111214
  Receipt Date: 20111208
  Transmission Date: 20120403
  Serious: Yes (Hospitalization)
  Sender: FDA-Public Use
  Company Number: US-VERTEX PHARMACEUTICALS INC.-AE-2011-004750

PATIENT
  Sex: Male
  Weight: 110.78 kg

DRUGS (3)
  1. INCIVEK [Suspect]
     Indication: HEPATITIS C
     Route: 048
     Dates: start: 20110930
  2. RIBAVIRIN [Concomitant]
     Indication: HEPATITIS C
     Route: 048
     Dates: start: 20110930
  3. PEGAYS [Concomitant]
     Indication: HEPATITIS C
     Route: 058
     Dates: start: 20110930

REACTIONS (3)
  - WOUND INFECTION STAPHYLOCOCCAL [None]
  - MEDICATION ERROR [None]
  - JOINT SWELLING [None]
